FAERS Safety Report 6676736-9 (Version None)
Quarter: 2010Q2

REPORT INFORMATION
  Report Type: 
  Country: None (occurrence: None)
  Receive Date: 20100409
  Receipt Date: 20100409
  Transmission Date: 20101027
  Serious: Yes (Other)
  Sender: FDA-Public Use
  Company Number: None

PATIENT
  Sex: Female

DRUGS (1)
  1. CYMBALTA [Suspect]
     Dosage: UNK 9 AM PO
     Route: 048
     Dates: start: 20100206, end: 20100226

REACTIONS (3)
  - DRY SKIN [None]
  - ERYTHEMA [None]
  - RASH [None]
